FAERS Safety Report 5916341-2 (Version None)
Quarter: 2008Q4

REPORT INFORMATION
  Report Type: 
  Country: None (occurrence: None)
  Receive Date: 20081013
  Receipt Date: 20081006
  Transmission Date: 20090506
  Serious: Yes (Life-Threatening, Other)
  Sender: FDA-Public Use
  Company Number: US-BAYER-200820272NA

PATIENT
  Age: 62 Year
  Sex: Female

DRUGS (4)
  1. CLIMARA [Suspect]
     Indication: MENOPAUSAL SYMPTOMS
     Route: 062
  2. VIVELLE [Suspect]
     Indication: MENOPAUSAL SYMPTOMS
  3. ESTRADERM [Suspect]
     Indication: MENOPAUSAL SYMPTOMS
  4. UNCODEABLE [Suspect]
     Indication: MENOPAUSAL SYMPTOMS

REACTIONS (18)
  - ABDOMINAL DISTENSION [None]
  - ADVERSE EVENT [None]
  - ANGER [None]
  - ANXIETY [None]
  - BREAST PAIN [None]
  - BRUXISM [None]
  - CHILLS [None]
  - CRYING [None]
  - DEPRESSION [None]
  - DRY EYE [None]
  - HEADACHE [None]
  - HYPERHIDROSIS [None]
  - INSOMNIA [None]
  - LIBIDO DISORDER [None]
  - NERVOUSNESS [None]
  - PANIC REACTION [None]
  - SUICIDAL IDEATION [None]
  - UNEVALUABLE EVENT [None]
